FAERS Safety Report 25467234 (Version 1)
Quarter: 2025Q2

REPORT INFORMATION
  Report Type: Spontaneous
  Country: BR (occurrence: BR)
  Receive Date: 20250623
  Receipt Date: 20250623
  Transmission Date: 20250716
  Serious: Yes (Hospitalization)
  Sender: OCTAPHARMA
  Company Number: BR-OCTA-2025000494

PATIENT
  Age: 45 Year
  Sex: Female
  Weight: 78 kg

DRUGS (6)
  1. HUMAN IMMUNOGLOBULIN G [Suspect]
     Active Substance: HUMAN IMMUNOGLOBULIN G
     Indication: Product used for unknown indication
     Route: 042
  2. DEPAKENE [Concomitant]
     Active Substance: VALPROIC ACID
  3. QUETIAPINE [Concomitant]
     Active Substance: QUETIAPINE
  4. PAROXETINE [Concomitant]
     Active Substance: PAROXETINE
  5. PYRIDOSTIGMINE [Concomitant]
     Active Substance: PYRIDOSTIGMINE
  6. PREDNISONE [Concomitant]
     Active Substance: PREDNISONE

REACTIONS (4)
  - Nausea [Unknown]
  - Dyspnoea [Unknown]
  - Somnolence [Unknown]
  - Dysarthria [Unknown]
